FAERS Safety Report 12248660 (Version 1)
Quarter: 2016Q2

REPORT INFORMATION
  Report Type: Spontaneous
  Country: US (occurrence: None)
  Receive Date: 20160407
  Receipt Date: 20160407
  Transmission Date: 20160815
  Serious: No
  Sender: FDA-Public Use
  Company Number: None

PATIENT
  Age: 39 Year
  Sex: Female
  Weight: 59.42 kg

DRUGS (5)
  1. TRANSDERM SCOP [Suspect]
     Active Substance: SCOPOLAMINE
     Indication: MOTION SICKNESS
     Dosage: 2 PATCH(ES) EVERY 3 DAYS APPLIED AS MEDICATED PATCH TO SKIN
     Route: 061
     Dates: start: 20160327, end: 20160329
  2. FAMOTIDINE. [Concomitant]
     Active Substance: FAMOTIDINE
  3. VITAMIN C [Concomitant]
     Active Substance: ASCORBIC ACID
  4. DIPHENHYDRAMINE. [Concomitant]
     Active Substance: DIPHENHYDRAMINE
  5. COD LIVER OIL [Concomitant]
     Active Substance: COD LIVER OIL

REACTIONS (8)
  - Anxiety [None]
  - Muscle spasms [None]
  - Asthenia [None]
  - Decreased appetite [None]
  - Weight decreased [None]
  - Fatigue [None]
  - Sensory loss [None]
  - Panic attack [None]

NARRATIVE: CASE EVENT DATE: 20160405
